FAERS Safety Report 9431390 (Version 1)
Quarter: 2013Q3

REPORT INFORMATION
  Report Type: Spontaneous
  Country: ES (occurrence: ES)
  Receive Date: 20130730
  Receipt Date: 20130730
  Transmission Date: 20140515
  Serious: Yes (Life-Threatening, Hospitalization)
  Sender: FDA-Public Use
  Company Number: ES-COVIDIEN/TYCO HEALTHCARE/MALLINCKRODT-T201303825

PATIENT
  Age: 60 Year
  Sex: Male

DRUGS (1)
  1. OPTIRAY 300 [Suspect]
     Dosage: 95 ML, SINGLE
     Route: 042
     Dates: start: 20130530, end: 20130530

REACTIONS (1)
  - Anaphylactic shock [Recovered/Resolved]
